FAERS Safety Report 6499876-6 (Version None)
Quarter: 2009Q4

REPORT INFORMATION
  Report Type: 
  Country: None (occurrence: None)
  Receive Date: 20091214
  Receipt Date: 20091214
  Transmission Date: 20100525
  Serious: No
  Sender: FDA-Public Use
  Company Number: None

PATIENT
  Age: 83 Year
  Sex: Male
  Weight: 73.5 kg

DRUGS (2)
  1. WARFARIN SODIUM [Suspect]
     Indication: PULMONARY EMBOLISM
     Dosage: EVERYDAY PO
     Route: 048
     Dates: start: 20091014, end: 20091031
  2. DEXTROSE [Suspect]
     Indication: PULMONARY EMBOLISM
     Dosage: EVERYDAY IV
     Route: 042
     Dates: start: 20091024, end: 20091104

REACTIONS (3)
  - ANAEMIA [None]
  - GASTRIC HAEMORRHAGE [None]
  - INTERNATIONAL NORMALISED RATIO ABNORMAL [None]
